FAERS Safety Report 5011961-4 (Version None)
Quarter: 2006Q2

REPORT INFORMATION
  Report Type: 
  Country: None (occurrence: None)
  Receive Date: 20060524
  Receipt Date: 20060512
  Transmission Date: 20061013
  Serious: Yes (Hospitalization)
  Sender: FDA-Public Use
  Company Number: MEDI-0004280

PATIENT
  Age: 30 Month
  Sex: Female

DRUGS (5)
  1. SYNAGIS [Suspect]
     Indication: ANTIVIRAL PROPHYLAXIS
     Dosage: SEE IMAGE,  INTRAMUSCULAR
     Route: 030
     Dates: start: 20031027, end: 20040216
  2. SYNAGIS [Suspect]
     Indication: ANTIVIRAL PROPHYLAXIS
     Dosage: SEE IMAGE,  INTRAMUSCULAR
     Route: 030
     Dates: start: 20031027
  3. SYNAGIS [Suspect]
     Indication: ANTIVIRAL PROPHYLAXIS
     Dosage: SEE IMAGE,  INTRAMUSCULAR
     Route: 030
     Dates: start: 20031202
  4. SYNAGIS [Suspect]
     Indication: ANTIVIRAL PROPHYLAXIS
     Dosage: SEE IMAGE,  INTRAMUSCULAR
     Route: 030
     Dates: start: 20040113
  5. LEVOTHYROXINE SODIUM [Concomitant]

REACTIONS (1)
  - ASTHMA [None]
